FAERS Safety Report 12858507 (Version 2)
Quarter: 2016Q4

REPORT INFORMATION
  Report Type: Spontaneous
  Country: CN (occurrence: CN)
  Receive Date: 20161018
  Receipt Date: 20161227
  Transmission Date: 20170207
  Serious: Yes (Other)
  Sender: FDA-Public Use
  Company Number: CN-JNJFOC-20161008095

PATIENT

DRUGS (1)
  1. INFLIXIMAB [Suspect]
     Active Substance: INFLIXIMAB
     Indication: CROHN^S DISEASE
     Route: 042

REACTIONS (14)
  - Pneumonia [Unknown]
  - Pyrexia [Unknown]
  - Infusion related reaction [Unknown]
  - Arthralgia [Unknown]
  - Gastroenteritis [Unknown]
  - Body tinea [Unknown]
  - Lymphoma [Unknown]
  - Oedema peripheral [Unknown]
  - Rash [Unknown]
  - Nasopharyngitis [Unknown]
  - Upper respiratory tract infection [Unknown]
  - Chest discomfort [Unknown]
  - Liver function test increased [Unknown]
  - Acne [Unknown]
